FAERS Safety Report 15367571 (Version 1)
Quarter: 2018Q3

REPORT INFORMATION
  Report Type: Spontaneous
  Country: US (occurrence: US)
  Receive Date: 20180904
  Receipt Date: 20180904
  Transmission Date: 20181010
  Serious: Yes (Hospitalization)
  Sender: FDA-Public Use
  Company Number: None

PATIENT
  Age: 34 Year
  Sex: Male

DRUGS (1)
  1. YESCARTA [Suspect]
     Active Substance: AXICABTAGENE CILOLEUCEL
     Indication: DIFFUSE LARGE B-CELL LYMPHOMA
     Dates: start: 20180430

REACTIONS (18)
  - Neurotoxicity [None]
  - Delirium [None]
  - Communication disorder [None]
  - Urinary incontinence [None]
  - Enuresis [None]
  - Hypotension [None]
  - Somnolence [None]
  - Speech disorder [None]
  - Headache [None]
  - Cytokine release syndrome [None]
  - Vision blurred [None]
  - Tangentiality [None]
  - Nausea [None]
  - Neurological symptom [None]
  - Febrile neutropenia [None]
  - Vomiting [None]
  - Visual tracking test abnormal [None]
  - Loss of personal independence in daily activities [None]
